FAERS Safety Report 6660372-4 (Version None)
Quarter: 2010Q1

REPORT INFORMATION
  Report Type: 
  Country: None (occurrence: None)
  Receive Date: 20100330
  Receipt Date: 20100330
  Transmission Date: 20100710
  Serious: Yes (Disabling)
  Sender: FDA-Public Use
  Company Number: None

PATIENT
  Sex: Female
  Weight: 86.1834 kg

DRUGS (1)
  1. LEXAPRO [Suspect]
     Indication: PAIN
     Dosage: 1 A DAY
     Dates: start: 20060101, end: 20091001

REACTIONS (5)
  - DIZZINESS [None]
  - HYPERHIDROSIS [None]
  - MUSCLE TWITCHING [None]
  - NERVE INJURY [None]
  - TREMOR [None]
